FAERS Safety Report 19570418 (Version 1)
Quarter: 2021Q3

REPORT INFORMATION
  Report Type: Report from Study
  Country: US (occurrence: US)
  Receive Date: 20210716
  Receipt Date: 20210716
  Transmission Date: 20211014
  Serious: Yes (Other)
  Sender: FDA-Public Use
  Company Number: US-ASTRAZENECA-2021A612248

PATIENT
  Age: 63 Year
  Sex: Female

DRUGS (2)
  1. TAGRISSO [Suspect]
     Active Substance: OSIMERTINIB
     Indication: LUNG CARCINOMA CELL TYPE UNSPECIFIED STAGE 0
     Route: 048
  2. TAGRISSO [Suspect]
     Active Substance: OSIMERTINIB
     Indication: LUNG CARCINOMA CELL TYPE UNSPECIFIED STAGE 0
     Route: 048

REACTIONS (11)
  - Abdominal discomfort [Unknown]
  - Insomnia [Unknown]
  - Rash [Unknown]
  - Adrenal mass [Unknown]
  - Lymphadenopathy [Unknown]
  - Nervous system disorder [Unknown]
  - Bone pain [Unknown]
  - Hyperthyroidism [Unknown]
  - Tooth erosion [Unknown]
  - Breast swelling [Unknown]
  - Adrenal insufficiency [Unknown]
